FAERS Safety Report 9730113 (Version 2)
Quarter: 2013Q4

REPORT INFORMATION
  Report Type: Spontaneous
  Country: AU (occurrence: AU)
  Receive Date: 20131204
  Receipt Date: 20131216
  Transmission Date: 20140711
  Serious: Yes (Other)
  Sender: FDA-Public Use
  Company Number: AU-BAXTER-2013BAX046985

PATIENT
  Sex: Female

DRUGS (3)
  1. KIOVIG NORMAL IMMUNOGLOBULIN (HUMAN) 20G/200ML FOR INTRAVENOUS USE INJ [Suspect]
     Indication: PRODUCT USED FOR UNKNOWN INDICATION
     Dosage: 145 GRAMS PRESCRIBED, ONLY 10-20 GRAMS INFUSED
     Route: 042
     Dates: start: 20131011, end: 20131011
  2. PREDNISOLONE [Concomitant]
     Indication: PEMPHIGOID
     Route: 048
     Dates: start: 201309
  3. VITAMIN D [Concomitant]
     Indication: PRODUCT USED FOR UNKNOWN INDICATION
     Route: 065
     Dates: start: 201309

REACTIONS (3)
  - Hypotension [Recovered/Resolved]
  - Flushing [Recovered/Resolved]
  - Presyncope [Recovered/Resolved]
